FAERS Safety Report 19020769 (Version 1)
Quarter: 2021Q1

REPORT INFORMATION
  Report Type: Report from Study
  Country: GB (occurrence: GB)
  Receive Date: 20210317
  Receipt Date: 20210317
  Transmission Date: 20210420
  Serious: Yes (Death, Hospitalization)
  Sender: FDA-Public Use
  Company Number: GB-BAYER-2021-102214

PATIENT
  Age: 73 Year
  Sex: Male
  Weight: 76 kg

DRUGS (6)
  1. ASPIRIN [ACETYLSALICYLIC ACID] [Concomitant]
     Active Substance: ASPIRIN
     Indication: ANTIPLATELET THERAPY
     Dosage: UNK
  2. HEPARIN [Concomitant]
     Active Substance: HEPARIN SODIUM
     Indication: ANTICOAGULANT THERAPY
     Dosage: 48 KILO?INTERNATIONAL UNIT TOTAL DURING SURGERY
     Route: 065
     Dates: start: 20200224, end: 20200224
  3. RED BLOOD CELLS [Concomitant]
     Active Substance: HUMAN RED BLOOD CELL
     Indication: TRANSFUSION
     Dosage: 900 MILLILITRE TOTAL INTRAAND POST?OPERATIVELY (UP TO 48 HOURS)
     Dates: start: 20200224
  4. FRESH FROZEN PLASMA [Concomitant]
     Active Substance: HUMAN PLASMA
     Indication: TRANSFUSION
     Dosage: UNK
     Dates: start: 20200224
  5. TRASYLOL [Suspect]
     Active Substance: APROTININ
     Indication: HEART VALVE REPLACEMENT
     Dosage: 600 MILLILITRE EVERY 1 DAY(S) LOADING DOSE 1 MILLION KIU PUMP PRIMING DOSE 1 MILLION KIU TOTAL CONTI
     Route: 042
     Dates: start: 20200224, end: 20200224
  6. WARFARIN [Concomitant]
     Active Substance: WARFARIN
     Indication: ANTICOAGULANT THERAPY
     Dosage: UNK

REACTIONS (3)
  - Renal impairment [Recovered/Resolved]
  - Product use in unapproved indication [Unknown]
  - Off label use [Unknown]

NARRATIVE: CASE EVENT DATE: 20200224
